FAERS Safety Report 26147504 (Version 1)
Quarter: 2025Q4

REPORT INFORMATION
  Report Type: Spontaneous
  Country: EU (occurrence: EU)
  Receive Date: 20251211
  Receipt Date: 20251211
  Transmission Date: 20260118
  Serious: Yes (Other)
  Sender: BLUEPRINT MEDICINES
  Company Number: EU-Blueprint Medicines Corporation-2025-AER-02648

PATIENT
  Sex: Male

DRUGS (2)
  1. AVAPRITINIB [Suspect]
     Active Substance: AVAPRITINIB
     Indication: Advanced systemic mastocytosis
     Route: 065
     Dates: start: 202501
  2. AVAPRITINIB [Suspect]
     Active Substance: AVAPRITINIB
     Indication: Chronic myelomonocytic leukaemia
     Route: 065

REACTIONS (1)
  - Renal impairment [Unknown]
